FAERS Safety Report 6420212-5 (Version None)
Quarter: 2009Q4

REPORT INFORMATION
  Report Type: 
  Country: None (occurrence: None)
  Receive Date: 20091029
  Receipt Date: 20091015
  Transmission Date: 20100525
  Serious: Yes (Hospitalization, Other)
  Sender: FDA-Public Use
  Company Number: PHEH2009US13913

PATIENT
  Sex: Female

DRUGS (1)
  1. RECLAST [Suspect]
     Dosage: UNK, UNK
     Dates: start: 20090916

REACTIONS (10)
  - BONE PAIN [None]
  - CARDIAC DISORDER [None]
  - GROIN PAIN [None]
  - HEADACHE [None]
  - JAW DISORDER [None]
  - NAUSEA [None]
  - PAIN [None]
  - PAIN IN EXTREMITY [None]
  - RENAL DISORDER [None]
  - VITAL FUNCTIONS ABNORMAL [None]
